FAERS Safety Report 5087341-2 (Version None)
Quarter: 2006Q3

REPORT INFORMATION
  Report Type: 
  Country: None (occurrence: None)
  Receive Date: 20060821
  Receipt Date: 20060807
  Transmission Date: 20061208
  Serious: Yes (Death)
  Sender: FDA-Public Use
  Company Number: HQWYE090707AUG06

PATIENT
  Age: 61 Year
  Sex: Male

DRUGS (9)
  1. PANTOPRAZOLE SODIUM [Suspect]
  2. ALENDRONATE SODIUM [Suspect]
  3. CARBAMAZEPINE [Suspect]
  4. DOXAZOSIN (DOXAZOSIN) [Suspect]
  5. MIANSERIN (MIANSERIN) [Suspect]
  6. MILNACIPRAN (MILNACIPRAN) [Suspect]
  7. QUETIAPINE FUMARATE [Concomitant]
  8. LORAZEPAM [Concomitant]
  9. TRAMADOL HCL [Concomitant]

REACTIONS (1)
  - DEATH [None]
